FAERS Safety Report 16986260 (Version 4)
Quarter: 2020Q1

REPORT INFORMATION
  Report Type: Spontaneous
  Country: US (occurrence: US)
  Receive Date: 20191101
  Receipt Date: 20200227
  Transmission Date: 20200409
  Serious: Yes (Other)
  Sender: FDA-Public Use
  Company Number: US-DSJP-DSU-2019-140484

PATIENT

DRUGS (2)
  1. TURALIO [Suspect]
     Active Substance: PEXIDARTINIB HYDROCHLORIDE
     Indication: REFRACTORY ANAEMIA WITH RINGED SIDEROBLASTS
     Dosage: 400 MG, BID
     Route: 048
     Dates: start: 20191014
  2. TURALIO [Suspect]
     Active Substance: PEXIDARTINIB HYDROCHLORIDE
     Indication: NEOPLASM SKIN

REACTIONS (15)
  - Menstruation delayed [Unknown]
  - Off label use [Not Recovered/Not Resolved]
  - Urticaria [Recovered/Resolved]
  - Haemoglobin decreased [Unknown]
  - Hair colour changes [Unknown]
  - Red blood cell count decreased [Unknown]
  - Haematocrit decreased [Unknown]
  - Condition aggravated [Not Recovered/Not Resolved]
  - Contusion [Unknown]
  - Sensitive skin [Unknown]
  - Pruritus [Unknown]
  - Pain in extremity [Unknown]
  - Fatigue [Unknown]
  - Lip swelling [Recovered/Resolved]
  - Blood iron decreased [Unknown]

NARRATIVE: CASE EVENT DATE: 2019
